FAERS Safety Report 13746925 (Version 3)
Quarter: 2018Q1

REPORT INFORMATION
  Report Type: Spontaneous
  Country: IT (occurrence: IT)
  Receive Date: 20170712
  Receipt Date: 20180305
  Transmission Date: 20180508
  Serious: Yes (Other)
  Sender: FDA-Public Use
  Company Number: IT-ALLERGAN-1728983US

PATIENT
  Age: 52 Year
  Sex: Female

DRUGS (3)
  1. CITALOPRAM HYDROBROMIDE - BP [Suspect]
     Active Substance: CITALOPRAM HYDROBROMIDE
     Indication: INTENTIONAL SELF-INJURY
     Dosage: 28 DOSAGE FORMS
     Route: 048
     Dates: start: 20160506, end: 20160506
  2. RIVOTRIL [Suspect]
     Active Substance: CLONAZEPAM
     Indication: INTENTIONAL SELF-INJURY
     Dosage: 20 DOSAGE FORMS
     Route: 048
     Dates: start: 20160506, end: 20160506
  3. LEXOTAN [Suspect]
     Active Substance: BROMAZEPAM
     Indication: INTENTIONAL SELF-INJURY
     Dosage: 15 ML
     Route: 048
     Dates: start: 20160506, end: 20160506

REACTIONS (4)
  - Drug abuse [Recovering/Resolving]
  - Intentional overdose [Unknown]
  - Intentional self-injury [Recovering/Resolving]
  - Sopor [Recovering/Resolving]

NARRATIVE: CASE EVENT DATE: 20160506
